FAERS Safety Report 12743001 (Version 1)
Quarter: 2016Q3

REPORT INFORMATION
  Report Type: Spontaneous
  Country: US (occurrence: US)
  Receive Date: 20160914
  Receipt Date: 20160914
  Transmission Date: 20161109
  Serious: Yes (Hospitalization)
  Sender: FDA-Public Use
  Company Number: US-SIGMA-TAU US-2016STPI000055

PATIENT
  Age: 59 Year
  Sex: Female
  Weight: 77.55 kg

DRUGS (2)
  1. MATULANE [Suspect]
     Active Substance: PROCARBAZINE HYDROCHLORIDE
     Indication: ASTROCYTOMA
     Dosage: 60 MG/M2, QD, DAYS 8-29
     Route: 048
     Dates: start: 20151023
  2. LOMUSTINE. [Suspect]
     Active Substance: LOMUSTINE
     Indication: ASTROCYTOMA
     Dosage: 110 MG/M2, QD ON DAY 1
     Route: 048

REACTIONS (6)
  - Confusional state [Unknown]
  - Hypokalaemia [Unknown]
  - Disease progression [Unknown]
  - Muscular weakness [Unknown]
  - Pancytopenia [Recovered/Resolved]
  - Thrombocytopenia [Recovered/Resolved]

NARRATIVE: CASE EVENT DATE: 20160111
